FAERS Safety Report 6803576 (Version 4)
Quarter: 2014Q1

REPORT INFORMATION
  Report Type: Spontaneous
  Country: JP (occurrence: JP)
  Receive Date: 20081104
  Receipt Date: 20140311
  Transmission Date: 20141002
  Serious: Yes (Hospitalization)
  Sender: FDA-Public Use
  Company Number: PHBS2008JP06176

PATIENT
  Age: 6 Year
  Sex: Male

DRUGS (7)
  1. NEORAL [Suspect]
     Indication: NEPHROTIC SYNDROME
     Dosage: 3.1 MG/KG, DAILY
  2. METHYLPREDNISOLONE [Suspect]
     Indication: FOCAL SEGMENTAL GLOMERULOSCLEROSIS
  3. PREDNISOLONE [Suspect]
     Indication: FOCAL SEGMENTAL GLOMERULOSCLEROSIS
     Dosage: 10 MG/KG, ON ALTERNATE DAYS
     Route: 048
  4. PREDNISOLONE [Suspect]
     Dosage: 25 MG, DAILY
  5. MIZORIBINE [Concomitant]
     Indication: FOCAL SEGMENTAL GLOMERULOSCLEROSIS
     Dosage: 6 MG/KG, QD
  6. TACROLIMUS [Concomitant]
     Indication: FOCAL SEGMENTAL GLOMERULOSCLEROSIS
     Dosage: 2 MG, PER DAY
  7. TACROLIMUS [Concomitant]
     Dosage: 0.08 MG/KG, QD

REACTIONS (8)
  - Nephrotic syndrome [Recovered/Resolved]
  - Generalised oedema [Recovered/Resolved]
  - Blood albumin abnormal [Recovered/Resolved]
  - Focal segmental glomerulosclerosis [Recovered/Resolved]
  - Condition aggravated [Recovered/Resolved]
  - Proteinuria [Recovered/Resolved]
  - Nephropathy toxic [Recovered/Resolved]
  - Drug ineffective [Unknown]
